FAERS Safety Report 6278980-1 (Version None)
Quarter: 2009Q3

REPORT INFORMATION
  Report Type: 
  Country: None (occurrence: None)
  Receive Date: 20090723
  Receipt Date: 20090720
  Transmission Date: 20100115
  Serious: No
  Sender: FDA-Public Use
  Company Number: US-B.I. PHARMACEUTICALS,INC./RIDGEFIELD-2009-BP-08601BP

PATIENT
  Sex: Female

DRUGS (6)
  1. SPIRIVA [Suspect]
     Indication: CHRONIC OBSTRUCTIVE PULMONARY DISEASE
     Dosage: 18 MCG
     Route: 055
     Dates: start: 20071201, end: 20090718
  2. PENTASA [Concomitant]
     Indication: CROHN'S DISEASE
     Dosage: 4000 MG
     Route: 048
  3. DILANTIN [Concomitant]
     Indication: CONVULSION
     Dosage: 600 MG
     Route: 048
  4. FUROSEMIDE [Concomitant]
     Indication: FLUID RETENTION
     Dosage: 80 MG
     Route: 048
  5. CALCIUM [Concomitant]
     Route: 048
  6. ONE A DAY MULTIVITAMIN [Concomitant]
     Route: 048

REACTIONS (4)
  - BONE PAIN [None]
  - OEDEMA [None]
  - PAIN IN EXTREMITY [None]
  - VERTIGO [None]
